FAERS Safety Report 7346704-2 (Version None)
Quarter: 2011Q1

REPORT INFORMATION
  Report Type: 
  Country: None (occurrence: None)
  Receive Date: 20110311
  Receipt Date: 20110228
  Transmission Date: 20110831
  Serious: Yes (Other)
  Sender: FDA-Public Use
  Company Number: CA-JNJFOC-20110301687

PATIENT
  Sex: Female

DRUGS (3)
  1. SIMPONI [Suspect]
     Indication: PSORIASIS
     Route: 058
  2. METHOTREXATE [Suspect]
     Indication: PRODUCT USED FOR UNKNOWN INDICATION
     Route: 065
  3. METHOTREXATE [Suspect]
     Route: 065

REACTIONS (6)
  - CHOLELITHIASIS [None]
  - PSORIASIS [None]
  - HYPOTHYROIDISM [None]
  - DEPRESSION [None]
  - HYPERTENSION [None]
  - HEPATIC ENZYME INCREASED [None]
